FAERS Safety Report 4971116-6 (Version None)
Quarter: 2006Q1

REPORT INFORMATION
  Report Type: 
  Country: None (occurrence: None)
  Receive Date: 20060207
  Receipt Date: 20050316
  Transmission Date: 20060701
  Serious: Yes (Disabling)
  Sender: FDA-Public Use
  Company Number: WAES 0503USA02818

PATIENT
  Age: 74 Year
  Sex: Female

DRUGS (4)
  1. ZOCOR [Suspect]
     Indication: BLOOD CHOLESTEROL INCREASED
     Dosage: 40 MG/DAILY/PO
     Route: 048
     Dates: start: 20040701, end: 20040701
  2. COZAAR [Concomitant]
  3. GLUCOPHAGE [Concomitant]
  4. MICRONASE [Concomitant]

REACTIONS (1)
  - MUSCULAR WEAKNESS [None]
